FAERS Safety Report 25317134 (Version 6)
Quarter: 2025Q3

REPORT INFORMATION
  Report Type: Report from Study
  Country: US (occurrence: US)
  Receive Date: 20250515
  Receipt Date: 20250903
  Transmission Date: 20251021
  Serious: Yes (Hospitalization, Other)
  Sender: SUNOVION
  Company Number: US-SMPA-2025SPA005732

PATIENT
  Age: 65 Year
  Sex: Male

DRUGS (2)
  1. ORGOVYX [Suspect]
     Active Substance: RELUGOLIX
     Indication: Prostate cancer
     Route: 048
  2. ORGOVYX [Suspect]
     Active Substance: RELUGOLIX
     Dosage: 120 MG, QD
     Route: 048
     Dates: start: 20250411

REACTIONS (12)
  - Arthritis infective [Unknown]
  - Knee operation [Unknown]
  - Pain [Unknown]
  - Feeling abnormal [Not Recovered/Not Resolved]
  - Urine flow decreased [Recovering/Resolving]
  - Nocturia [Unknown]
  - Feeling abnormal [Unknown]
  - Night sweats [Recovering/Resolving]
  - Hyperhidrosis [Unknown]
  - Insomnia [Unknown]
  - Hot flush [Unknown]
  - Arthralgia [Unknown]

NARRATIVE: CASE EVENT DATE: 20250201
